FAERS Safety Report 8953988 (Version 1)
Quarter: 2012Q4

REPORT INFORMATION
  Report Type: 
  Country: US (occurrence: US)
  Receive Date: 20121206
  Receipt Date: 20121206
  Transmission Date: 20130627
  Serious: Yes (Hospitalization, Disabling)
  Sender: FDA-Public Use
  Company Number: US-WATSON-2012-21379

PATIENT
  Age: 53 Year
  Sex: Female

DRUGS (4)
  1. HEPARIN SODIUM [Suspect]
     Indication: MITRAL VALVE REPLACEMENT
     Dosage: 20000 international units,unknown
     Route: 065
  2. WARFARIN [Suspect]
     Indication: MITRAL VALVE REPLACEMENT
     Dosage: 5 mg, unknown
     Route: 065
  3. WARFARIN [Suspect]
     Dosage: 4 mg, UNK
     Route: 065
  4. PROTAMINE [Concomitant]
     Indication: HEPARIN NEUTRALISATION THERAPY
     Dosage: 100 mg, UNK
     Route: 065

REACTIONS (2)
  - Breast necrosis [Recovered/Resolved]
  - Heparin-induced thrombocytopenia [Recovered/Resolved]
